FAERS Safety Report 8897403 (Version 1)
Quarter: 2012Q4

REPORT INFORMATION
  Report Type: 
  Country: US (occurrence: US)
  Receive Date: 20121108
  Receipt Date: 20121108
  Transmission Date: 20130627
  Serious: No
  Sender: FDA-Public Use
  Company Number: US-AMGEN-USASP2012025793

PATIENT
  Sex: Female
  Weight: 86.17 kg

DRUGS (8)
  1. ENBREL [Suspect]
     Indication: PRODUCT USED FOR UNKNOWN INDICATION
     Dosage: 50 mg, qwk
     Route: 058
  2. OMEPRAZOLE [Concomitant]
     Dosage: 40 mg, UNK
  3. IBUPROFEN [Concomitant]
     Dosage: 800 mg, UNK
  4. METOPROLOL [Concomitant]
     Dosage: 25 mg, UNK
  5. CRESTOR [Concomitant]
     Dosage: 20 mg, UNK
  6. LOSARTAN POTASICO [Concomitant]
     Dosage: 25 mg, UNK
  7. CALCIUM D                          /00944201/ [Concomitant]
  8. ASA [Concomitant]
     Dosage: 81 mg, UNK

REACTIONS (2)
  - Tooth abscess [Recovered/Resolved]
  - Injection site pain [Unknown]
